FAERS Safety Report 20262063 (Version 3)
Quarter: 2022Q2

REPORT INFORMATION
  Report Type: Report from Study
  Country: US (occurrence: US)
  Receive Date: 20211231
  Receipt Date: 20220415
  Transmission Date: 20220721
  Serious: Yes (Death, Life-Threatening, Hospitalization, Disabling, Other)
  Sender: FDA-Public Use
  Company Number: US-UCBSA-2021060294

PATIENT
  Age: 41 Year
  Sex: Male

DRUGS (1)
  1. CERTOLIZUMAB PEGOL [Suspect]
     Active Substance: CERTOLIZUMAB PEGOL
     Indication: Crohn^s disease
     Dosage: 400 MILLIGRAM, EV 4 WEEKS
     Route: 058
     Dates: end: 20210801

REACTIONS (3)
  - COVID-19 [Fatal]
  - Intestinal obstruction [Recovering/Resolving]
  - Implantable defibrillator insertion [Unknown]

NARRATIVE: CASE EVENT DATE: 20210913
